FAERS Safety Report 10014587 (Version 1)
Quarter: 2014Q1

REPORT INFORMATION
  Report Type: Report from Study
  Country: US (occurrence: US)
  Receive Date: 20140317
  Receipt Date: 20140317
  Transmission Date: 20141002
  Serious: Yes (Other)
  Sender: FDA-Public Use
  Company Number: US-PURDUE-USA-2014-0112024

PATIENT
  Sex: Male

DRUGS (2)
  1. OXY CR TAB [Suspect]
     Indication: BRAIN NEOPLASM
     Dosage: 480 MG, Q8H
     Route: 048
  2. OXY CR TAB [Suspect]
     Indication: BACK PAIN
     Dosage: 360 MG, Q8H
     Route: 048

REACTIONS (5)
  - Intervertebral disc degeneration [Unknown]
  - Pain [Unknown]
  - Back pain [Unknown]
  - General physical health deterioration [Unknown]
  - Quality of life decreased [Unknown]
